FAERS Safety Report 9350758 (Version 1)
Quarter: 2013Q2

REPORT INFORMATION
  Report Type: Report from Study
  Country: FR (occurrence: FR)
  Receive Date: 20130617
  Receipt Date: 20130617
  Transmission Date: 20140414
  Serious: Yes (Death, Hospitalization)
  Sender: FDA-Public Use
  Company Number: FR-MILLENNIUM PHARMACEUTICALS, INC.-2013-01384

PATIENT
  Sex: 0

DRUGS (7)
  1. VELCADE [Suspect]
     Indication: PLASMA CELL MYELOMA
     Dosage: 2.2 MG, UNK
     Route: 065
     Dates: start: 20120507, end: 20121207
  2. REVLIMID [Suspect]
     Indication: PLASMA CELL MYELOMA
     Dosage: 10 MG, UNK
     Route: 065
     Dates: start: 20120507, end: 20130213
  3. DEXAMETHASONE [Suspect]
     Indication: PLASMA CELL MYELOMA
     Dosage: 10 MG, UNK
     Route: 065
     Dates: start: 20120507, end: 20121208
  4. ZELITREX                           /01269701/ [Concomitant]
     Dosage: 500 MG, UNK
     Route: 048
  5. KARDEGIC                           /00002703/ [Concomitant]
     Dosage: 75 MG, UNK
     Route: 048
  6. CRESTOR                            /01588601/ [Concomitant]
     Dosage: 20 MG, UNK
     Route: 048
  7. SKENAN [Concomitant]
     Dosage: 50 MG, UNK
     Route: 048

REACTIONS (4)
  - Death [Fatal]
  - Sigmoiditis [Recovered/Resolved]
  - Large intestine perforation [Recovered/Resolved]
  - Clostridium difficile colitis [Recovered/Resolved]
